FAERS Safety Report 19760986 (Version 1)
Quarter: 2021Q3

REPORT INFORMATION
  Report Type: Spontaneous
  Country: US (occurrence: US)
  Receive Date: 20210827
  Receipt Date: 20210827
  Transmission Date: 20211014
  Serious: No
  Sender: FDA-Public Use
  Company Number: None

PATIENT
  Age: 71 Year
  Sex: Male
  Weight: 94.5 kg

DRUGS (11)
  1. REMDESIVIR. [Concomitant]
     Active Substance: REMDESIVIR
     Dates: start: 20210824
  2. VANCOMYCIN [Concomitant]
     Active Substance: VANCOMYCIN
     Dates: start: 20210823, end: 20210826
  3. FAMOTIDINE. [Concomitant]
     Active Substance: FAMOTIDINE
     Dates: start: 20210823
  4. PHENYLEPHRINE DRIP [Concomitant]
     Dates: start: 20210824
  5. PROPOFOL. [Concomitant]
     Active Substance: PROPOFOL
     Dates: start: 20210824
  6. HEPARIN [Concomitant]
     Active Substance: HEPARIN SODIUM
     Dates: start: 20210823
  7. AMIODARONE DRIP [Concomitant]
     Dates: start: 20210823
  8. BARICITINIB. [Suspect]
     Active Substance: BARICITINIB
     Indication: COVID-19
     Dosage: ?          OTHER ROUTE:VIA NG TUBE?
     Dates: start: 20210826, end: 20210827
  9. DEXAMETHASONE. [Concomitant]
     Active Substance: DEXAMETHASONE
     Dates: start: 20210823
  10. DIGOXIN. [Concomitant]
     Active Substance: DIGOXIN
     Dates: start: 20210823, end: 20210825
  11. PIPERACILLIN AND TAZOBACTAM [Concomitant]
     Active Substance: PIPERACILLIN SODIUM\TAZOBACTAM SODIUM
     Dates: start: 20210823

REACTIONS (3)
  - Atrial fibrillation [None]
  - Pulse absent [None]
  - Thrombosis [None]

NARRATIVE: CASE EVENT DATE: 20210826
